FAERS Safety Report 12643680 (Version 1)
Quarter: 2016Q3

REPORT INFORMATION
  Report Type: Spontaneous
  Country: GB (occurrence: GB)
  Receive Date: 20160811
  Receipt Date: 20160811
  Transmission Date: 20161109
  Serious: Yes (Hospitalization, Other)
  Sender: FDA-Public Use
  Company Number: GB-MYLANLABS-2016M1033183

PATIENT

DRUGS (4)
  1. LIDOCAINE. [Suspect]
     Active Substance: LIDOCAINE
     Indication: PRODUCT USED FOR UNKNOWN INDICATION
     Dosage: 0.5ML: 2% LIDOCAINE WITH 1:80,000 EPINEPHRINE
     Route: 050
  2. EPINEPHRINE. [Suspect]
     Active Substance: EPINEPHRINE
     Indication: PRODUCT USED FOR UNKNOWN INDICATION
     Dosage: 0.5ML: 2% LIDOCAINE WITH 1:80,000 EPINEPHRINE
     Route: 050
  3. LIDOCAINE. [Suspect]
     Active Substance: LIDOCAINE
     Dosage: 1.7ML: 2% LIDOCAINE WITH 1:80,000 EPINEPHRINE
     Route: 050
  4. EPINEPHRINE. [Suspect]
     Active Substance: EPINEPHRINE
     Dosage: 1.7ML: 2% LIDOCAINE WITH 1:80,000 EPINEPHRINE
     Route: 050

REACTIONS (2)
  - Post-traumatic neuralgia [Unknown]
  - Stomatitis necrotising [Recovering/Resolving]
